FAERS Safety Report 14968131 (Version 1)
Quarter: 2018Q2

REPORT INFORMATION
  Report Type: Spontaneous
  Country: US (occurrence: US)
  Receive Date: 20180604
  Receipt Date: 20180604
  Transmission Date: 20180711
  Serious: Yes (Death, Hospitalization)
  Sender: FDA-Public Use
  Company Number: US-ROCHE-2122531

PATIENT
  Age: 68 Year
  Sex: Female
  Weight: 93.07 kg

DRUGS (9)
  1. TARCEVA [Suspect]
     Active Substance: ERLOTINIB HYDROCHLORIDE
     Indication: COLON CANCER
     Dosage: 4 TAB EVERY 12 HR
     Route: 048
     Dates: start: 20180416
  2. LETROZOLE. [Concomitant]
     Active Substance: LETROZOLE
     Indication: BREAST CANCER
     Route: 048
     Dates: start: 20151122
  3. HYDROCORTISONE. [Concomitant]
     Active Substance: HYDROCORTISONE
     Indication: RASH
     Route: 061
     Dates: start: 20180417
  4. DOXYCYCLINE. [Concomitant]
     Active Substance: DOXYCYCLINE
     Indication: RASH
     Route: 065
  5. METOPROLOL. [Concomitant]
     Active Substance: METOPROLOL
     Indication: BLOOD PRESSURE MEASUREMENT
     Route: 048
  6. NEURONTIN [Concomitant]
     Active Substance: GABAPENTIN
     Indication: GASTROOESOPHAGEAL REFLUX DISEASE
     Route: 048
  7. LISINOPRIL/HCTZ [Concomitant]
     Active Substance: HYDROCHLOROTHIAZIDE\LISINOPRIL
     Indication: BLOOD PRESSURE MEASUREMENT
     Dosage: 20/12.5 MG
     Route: 048
     Dates: start: 20150121
  8. ZELBORAF [Suspect]
     Active Substance: VEMURAFENIB
     Indication: COLON CANCER METASTATIC
     Dosage: DOSE: 4 TABLETS OF 240 MG.
     Route: 048
     Dates: start: 20180417
  9. NEURONTIN [Concomitant]
     Active Substance: GABAPENTIN
     Route: 048
     Dates: start: 20150317

REACTIONS (5)
  - Off label use [Unknown]
  - Intentional product use issue [Unknown]
  - Hepatic enzyme increased [Fatal]
  - Hepatic enzyme increased [Unknown]
  - Confusional state [Unknown]

NARRATIVE: CASE EVENT DATE: 20180424
